FAERS Safety Report 18189425 (Version 1)
Quarter: 2020Q3

REPORT INFORMATION
  Report Type: Spontaneous
  Country: US (occurrence: US)
  Receive Date: 20200824
  Receipt Date: 20200824
  Transmission Date: 20201103
  Serious: Yes (Other)
  Sender: FDA-Public Use
  Company Number: US-BAUSCH-BL-2020-020436

PATIENT
  Age: 44 Year
  Sex: Male

DRUGS (1)
  1. IMIQUIMOD. [Suspect]
     Active Substance: IMIQUIMOD
     Indication: ACTINIC CHEILITIS
     Dosage: ONLY 4 APPLICATIONS OF THE IMIQUIMOD
     Route: 061

REACTIONS (1)
  - Lichen planus [Recovered/Resolved]
